FAERS Safety Report 12047274 (Version 1)
Quarter: 2016Q1

REPORT INFORMATION
  Report Type: Report from Study
  Country: US (occurrence: US)
  Receive Date: 20160208
  Receipt Date: 20160208
  Transmission Date: 20160526
  Serious: Yes (Death)
  Sender: FDA-Public Use
  Company Number: US-ASTELLAS-2016US004582

PATIENT
  Age: 68 Year

DRUGS (3)
  1. ERLOTINIB [Suspect]
     Active Substance: ERLOTINIB
     Indication: PANCREATIC CARCINOMA
     Dosage: 150 MG, ONCE DAILY (ON DAYS 1-5, 8 -12, AND 15-26)
     Route: 048
     Dates: start: 20051201
  2. GEMCITABINE [Suspect]
     Active Substance: GEMCITABINE\GEMCITABINE HYDROCHLORIDE
     Indication: PANCREATIC CARCINOMA
     Dosage: 1000 MG/KG, CYCLIC (OVER 30 MIN. ON DAYS 1, 8, AND 15)
     Route: 042
     Dates: start: 20051201
  3. BEVACIZUMAB [Suspect]
     Active Substance: BEVACIZUMAB
     Indication: PANCREATIC CARCINOMA
     Dosage: 10 MG/KG, CYCLIC (OVER 30-90 MINUTE ON DAYS 1 AND 15)
     Route: 042
     Dates: start: 20051201

REACTIONS (1)
  - Death [Fatal]

NARRATIVE: CASE EVENT DATE: 20060208
